FAERS Safety Report 7265195-3 (Version None)
Quarter: 2011Q1

REPORT INFORMATION
  Report Type: 
  Country: None (occurrence: None)
  Receive Date: 20110131
  Receipt Date: 20110121
  Transmission Date: 20110831
  Serious: Yes (Hospitalization)
  Sender: FDA-Public Use
  Company Number: BR-ASTRAZENECA-2011SE04017

PATIENT
  Age: 64 Year
  Sex: Male
  Weight: 75 kg

DRUGS (3)
  1. ATACAND [Suspect]
     Indication: HYPERTENSION
     Route: 048
     Dates: start: 20080101, end: 20110118
  2. ATENOLOL (MEDLEY) [Concomitant]
     Indication: HYPERTENSION
     Dosage: UNKNOWN DOSE ONCE DAILY
     Route: 048
     Dates: start: 20010101
  3. UNKNWN MANIPULATED FORMULA [Concomitant]
     Indication: HIATUS HERNIA
     Route: 048
     Dates: start: 20090101, end: 20100101

REACTIONS (2)
  - GASTROOESOPHAGEAL REFLUX DISEASE [None]
  - HIATUS HERNIA [None]
